FAERS Safety Report 23651947 (Version 1)
Quarter: 2024Q1

REPORT INFORMATION
  Report Type: Spontaneous
  Country: RU (occurrence: RU)
  Receive Date: 20240320
  Receipt Date: 20240320
  Transmission Date: 20240410
  Serious: Yes (Other)
  Sender: FDA-Public Use
  Company Number: RU-BIOGEN-2024BI01255405

PATIENT
  Age: 30 Year
  Sex: Male
  Weight: 72 kg

DRUGS (3)
  1. PLEGRIDY [Suspect]
     Active Substance: PEGINTERFERON BETA-1A
     Indication: Relapsing-remitting multiple sclerosis
     Route: 050
     Dates: start: 20220913, end: 20230706
  2. PLEGRIDY [Suspect]
     Active Substance: PEGINTERFERON BETA-1A
     Route: 050
     Dates: start: 20231026, end: 20240115
  3. CEREPRO [Concomitant]
     Indication: Cognitive disorder
     Dosage: 1 CAPSULE 400 MG X 1 ONCE/DAY
     Route: 050
     Dates: start: 20231023

REACTIONS (2)
  - Skin reaction [Recovered/Resolved]
  - Influenza like illness [Unknown]

NARRATIVE: CASE EVENT DATE: 20220913
